FAERS Safety Report 11058214 (Version 1)
Quarter: 2015Q2

REPORT INFORMATION
  Report Type: Spontaneous
  Country: US (occurrence: None)
  Receive Date: 20150422
  Receipt Date: 20150422
  Transmission Date: 20150821
  Serious: Yes (Other)
  Sender: FDA-Public Use
  Company Number: None

PATIENT
  Age: 57 Year
  Sex: Female

DRUGS (1)
  1. SUTENT [Suspect]
     Active Substance: SUNITINIB MALATE
     Indication: NEOPLASM MALIGNANT
     Dosage: 37.5MG, DAILY, 14 ON 7 OFF, ORAL
     Route: 048
     Dates: start: 20140930, end: 201504

REACTIONS (1)
  - Treatment failure [None]

NARRATIVE: CASE EVENT DATE: 201504
